FAERS Safety Report 24828929 (Version 2)
Quarter: 2025Q1

REPORT INFORMATION
  Report Type: Spontaneous
  Country: US (occurrence: US)
  Receive Date: 20250110
  Receipt Date: 20250129
  Transmission Date: 20250409
  Serious: No
  Sender: CHATTEM
  Company Number: US-OPELLA-2025OHG000655

PATIENT
  Sex: Female

DRUGS (1)
  1. ALLEGRA-D 24 HOUR [Suspect]
     Active Substance: FEXOFENADINE HYDROCHLORIDE\PSEUDOEPHEDRINE HYDROCHLORIDE
     Indication: Hypersensitivity
     Dosage: EVERY EVENING AROUND 12 HOURS AFTER I^VE TAKEN THE PILL?STRENGTH: 180 MG+240 MG

REACTIONS (2)
  - Sneezing [Unknown]
  - Therapeutic product effect variable [Unknown]
